FAERS Safety Report 10520361 (Version 3)
Quarter: 2015Q2

REPORT INFORMATION
  Report Type: Spontaneous
  Country: US (occurrence: US)
  Receive Date: 20141015
  Receipt Date: 20150416
  Transmission Date: 20150821
  Serious: No
  Sender: FDA-Public Use
  Company Number: US-GLAXOSMITHKLINE-A1085592A

PATIENT

DRUGS (1)
  1. PROMACTA [Suspect]
     Active Substance: ELTROMBOPAG OLAMINE
     Indication: IMMUNE THROMBOCYTOPENIC PURPURA
     Dosage: 50 MG, QD
     Route: 065
     Dates: start: 20140513

REACTIONS (5)
  - Pruritus generalised [Not Recovered/Not Resolved]
  - Skin irritation [Unknown]
  - Pruritus [Unknown]
  - Hair texture abnormal [Unknown]
  - Hot flush [Unknown]
